FAERS Safety Report 23785761 (Version 1)
Quarter: 2024Q2

REPORT INFORMATION
  Report Type: Spontaneous
  Country: US (occurrence: US)
  Receive Date: 20240425
  Receipt Date: 20240425
  Transmission Date: 20240715
  Serious: No
  Sender: FDA-Public Use
  Company Number: US-SA-2024SA121510

PATIENT
  Age: 17 Year
  Sex: Female

DRUGS (1)
  1. DUPIXENT [Suspect]
     Active Substance: DUPILUMAB
     Indication: Oropharyngeal discomfort
     Dosage: 300 MG, QW
     Route: 065

REACTIONS (2)
  - Product use in unapproved indication [Unknown]
  - Product preparation error [Unknown]
